FAERS Safety Report 19711392 (Version 1)
Quarter: 2021Q3

REPORT INFORMATION
  Report Type: Spontaneous
  Country: DE (occurrence: DE)
  Receive Date: 20210817
  Receipt Date: 20210817
  Transmission Date: 20211014
  Serious: Yes (Hospitalization)
  Sender: FDA-Public Use
  Company Number: DE-MYLANLABS-2021M1051644

PATIENT
  Age: 97 Year
  Sex: Female

DRUGS (3)
  1. BETAHISTIN                         /00141802/ [Concomitant]
     Active Substance: BETAHISTINE HYDROCHLORIDE
     Dosage: 12 MG, 1?0?0?0
  2. TORASEMIDE [Suspect]
     Active Substance: TORSEMIDE
     Indication: PRODUCT USED FOR UNKNOWN INDICATION
     Dosage: 20 MG, 1?0?0?0
  3. BISOPROLOL [Concomitant]
     Active Substance: BISOPROLOL
     Dosage: 5 MG, IF NECESSARY

REACTIONS (6)
  - General physical health deterioration [Unknown]
  - Dizziness [Unknown]
  - Dehydration [Unknown]
  - Acute kidney injury [Unknown]
  - Condition aggravated [Unknown]
  - Dyspnoea [Unknown]
